FAERS Safety Report 23448563 (Version 1)
Quarter: 2024Q1

REPORT INFORMATION
  Report Type: Spontaneous
  Country: US (occurrence: US)
  Receive Date: 20240127
  Receipt Date: 20240127
  Transmission Date: 20240410
  Serious: No
  Sender: FDA-Public Use
  Company Number: US-ABBVIE-5599823

PATIENT
  Sex: Female
  Weight: 3.175 kg

DRUGS (3)
  1. HUMIRA [Suspect]
     Active Substance: ADALIMUMAB
     Indication: Maternal exposure timing unspecified
  2. HUMIRA [Suspect]
     Active Substance: ADALIMUMAB
  3. VITAMIN D [Concomitant]
     Active Substance: VITAMIN D NOS
     Indication: Product used for unknown indication

REACTIONS (5)
  - Foetal exposure during pregnancy [Unknown]
  - Weight decreased [Recovering/Resolving]
  - Respiratory syncytial virus infection [Unknown]
  - Exposure via breast milk [Unknown]
  - Immunisation reaction [Unknown]

NARRATIVE: CASE EVENT DATE: 20230101
